FAERS Safety Report 9783794 (Version 2)
Quarter: 2014Q1

REPORT INFORMATION
  Report Type: Spontaneous
  Country: US (occurrence: US)
  Receive Date: 20131226
  Receipt Date: 20140123
  Transmission Date: 20141002
  Serious: No
  Sender: FDA-Public Use
  Company Number: US-PFIZER INC-2013366107

PATIENT
  Age: 33 Year
  Sex: Female

DRUGS (2)
  1. INLYTA [Suspect]
     Indication: MALIGNANT NEOPLASM OF RENAL PELVIS
     Dosage: 1 MG, 2X/DAY
     Route: 048
     Dates: start: 201308
  2. INLYTA [Suspect]
     Dosage: 5 MG, 2X/DAY (1 TABLET)
     Dates: start: 201308

REACTIONS (7)
  - Alopecia [Unknown]
  - Hypothyroidism [Unknown]
  - Dysuria [Unknown]
  - Palmar-plantar erythrodysaesthesia syndrome [Unknown]
  - Pain [Unknown]
  - Dry skin [Unknown]
  - Constipation [Unknown]
